FAERS Safety Report 8772827 (Version 1)
Quarter: 2012Q4

REPORT INFORMATION
  Report Type: 
  Country: US (occurrence: US)
  Receive Date: 20120907
  Receipt Date: 20120907
  Transmission Date: 20130627
  Serious: Yes (Other)
  Sender: FDA-Public Use
  Company Number: US-PFIZER INC-2012217451

PATIENT
  Age: 28 Year
  Sex: Male

DRUGS (4)
  1. ADVIL [Suspect]
     Indication: PAIN
     Route: 048
  2. LAMICTAL [Interacting]
     Indication: EPILEPSY
     Dosage: 75 mg daily
     Route: 048
     Dates: start: 201206
  3. DIVALPROEX [Concomitant]
  4. DICLOFENAC [Concomitant]

REACTIONS (4)
  - Drug interaction [Recovered/Resolved]
  - Convulsion [Recovered/Resolved]
  - Abdominal pain upper [Recovered/Resolved]
  - Vomiting [Recovered/Resolved]
